FAERS Safety Report 5006005-4 (Version None)
Quarter: 2006Q2

REPORT INFORMATION
  Report Type: 
  Country: None (occurrence: None)
  Receive Date: 20060517
  Receipt Date: 20060517
  Transmission Date: 20061013
  Serious: Yes (Hospitalization)
  Sender: FDA-Public Use
  Company Number: None

PATIENT
  Sex: Male

DRUGS (12)
  1. FONDAPARINUX  2.5 MG/0.5 ML [Suspect]
     Indication: THROMBOSIS PROPHYLAXIS
     Dosage: 2.5 MG DAILY SQ
     Route: 058
     Dates: start: 20051108, end: 20051108
  2. METOPROLOL TARTRATE [Concomitant]
  3. ASPIRIN [Concomitant]
  4. TERAZOSIN HCL [Concomitant]
  5. OMEPRAZOLE [Concomitant]
  6. METOCLOPRAMIDE [Concomitant]
  7. LISINOPRIL [Concomitant]
  8. INSULIN [Concomitant]
  9. DOCUSATE [Concomitant]
  10. ALLOPURINOL [Concomitant]
  11. COMBIVENT [Concomitant]
  12. VICODIN [Concomitant]

REACTIONS (2)
  - GASTROINTESTINAL HAEMORRHAGE [None]
  - POST PROCEDURAL HAEMORRHAGE [None]
